FAERS Safety Report 7106130-8 (Version None)
Quarter: 2010Q4

REPORT INFORMATION
  Report Type: 
  Country: None (occurrence: None)
  Receive Date: 20101116
  Receipt Date: 20101105
  Transmission Date: 20110411
  Serious: Yes (Hospitalization)
  Sender: FDA-Public Use
  Company Number: US-BAXTER-2010BH027321

PATIENT
  Age: 46 Year
  Sex: Female

DRUGS (3)
  1. DIANEAL [Suspect]
     Indication: PERITONEAL DIALYSIS
     Route: 033
     Dates: start: 20091129, end: 20101001
  2. DIANEAL [Suspect]
     Route: 033
     Dates: start: 20101001
  3. DIANEAL [Suspect]
     Route: 033
     Dates: start: 20101001

REACTIONS (1)
  - CHEST PAIN [None]
